FAERS Safety Report 20214189 (Version 2)
Quarter: 2021Q4

REPORT INFORMATION
  Report Type: Spontaneous
  Country: CN (occurrence: CN)
  Receive Date: 20211221
  Receipt Date: 20211223
  Transmission Date: 20220303
  Serious: Yes (Death, Other)
  Sender: FDA-Public Use
  Company Number: CN-ELI_LILLY_AND_COMPANY-CN202112008843

PATIENT
  Age: 70 Year
  Sex: Female

DRUGS (1)
  1. HUMALOG [Suspect]
     Active Substance: INSULIN LISPRO
     Indication: Diabetes mellitus
     Dosage: UNK UNK, UNKNOWN
     Route: 058

REACTIONS (8)
  - Diabetes mellitus inadequate control [Fatal]
  - Myocardial infarction [Fatal]
  - Retinal haemorrhage [Unknown]
  - Feeling hot [Unknown]
  - Vision blurred [Unknown]
  - Pain in extremity [Unknown]
  - Mobility decreased [Unknown]
  - Skin plaque [Unknown]
